FAERS Safety Report 7054506-X (Version None)
Quarter: 2010Q4

REPORT INFORMATION
  Report Type: 
  Country: None (occurrence: None)
  Receive Date: 20101020
  Receipt Date: 20100722
  Transmission Date: 20110411
  Serious: No
  Sender: FDA-Public Use
  Company Number: US-ALLERGAN-1007212US

PATIENT
  Age: 74 Year
  Sex: Female

DRUGS (1)
  1. LATISSE [Suspect]
     Indication: GROWTH OF EYELASHES
     Dosage: 1 GTT, SINGLE
     Dates: start: 20100519, end: 20100519

REACTIONS (4)
  - ERYTHEMA OF EYELID [None]
  - EYELID IRRITATION [None]
  - EYELID OEDEMA [None]
  - EYELIDS PRURITUS [None]
